FAERS Safety Report 20417471 (Version 1)
Quarter: 2022Q1

REPORT INFORMATION
  Report Type: Spontaneous
  Country: US (occurrence: None)
  Receive Date: 20220126
  Receipt Date: 20220126
  Transmission Date: 20220423
  Serious: Yes (unspecified)
  Sender: FDA-Public Use
  Company Number: None

PATIENT
  Age: 43 Year
  Sex: Female
  Weight: 103.95 kg

DRUGS (9)
  1. BAMLANIVIMAB\ETESEVIMAB [Suspect]
     Active Substance: BAMLANIVIMAB\ETESEVIMAB
     Indication: COVID-19
     Dates: start: 20220118, end: 20220118
  2. Veniflaxine [Concomitant]
  3. SAXENDA [Concomitant]
     Active Substance: LIRAGLUTIDE
  4. TOPAMAX [Concomitant]
     Active Substance: TOPIRAMATE
  5. BIOTIN [Concomitant]
     Active Substance: BIOTIN
  6. VITAMIN D3 [Concomitant]
     Active Substance: CHOLECALCIFEROL
  7. ZINC [Concomitant]
     Active Substance: ZINC
  8. VITAMIN C [Concomitant]
     Active Substance: ASCORBIC ACID
  9. Claratin [Concomitant]

REACTIONS (7)
  - Chest pain [None]
  - Pain [None]
  - Pain in extremity [None]
  - Chills [None]
  - Feeling cold [None]
  - Body temperature increased [None]
  - Infusion related reaction [None]

NARRATIVE: CASE EVENT DATE: 20220118
